FAERS Safety Report 9382352 (Version 2)
Quarter: 2013Q3

REPORT INFORMATION
  Report Type: Spontaneous
  Country: JP (occurrence: JP)
  Receive Date: 20130703
  Receipt Date: 20130711
  Transmission Date: 20140515
  Serious: Yes (Other)
  Sender: FDA-Public Use
  Company Number: JP-BRISTOL-MYERS SQUIBB COMPANY-19061134

PATIENT
  Age: 4 Decade
  Sex: Female

DRUGS (3)
  1. ABILIFY TABS [Suspect]
     Indication: SCHIZOPHRENIA
     Dosage: ON UNK-17JUN13:6MG?DOSE INCREASED TO 18MG/D ON 18JUN13-ONG
     Route: 048
  2. TASMOLIN [Concomitant]
     Dosage: TABLET
  3. DIAZEPAM [Concomitant]

REACTIONS (4)
  - Hallucination [Unknown]
  - Delusion [Unknown]
  - Muscle tightness [Unknown]
  - Torticollis [Not Recovered/Not Resolved]
